FAERS Safety Report 7364059-4 (Version None)
Quarter: 2011Q1

REPORT INFORMATION
  Report Type: 
  Country: None (occurrence: None)
  Receive Date: 20110321
  Receipt Date: 20110223
  Transmission Date: 20110831
  Serious: No
  Sender: FDA-Public Use
  Company Number: US-BAYER-2011-018526

PATIENT
  Sex: Female
  Weight: 68 kg

DRUGS (5)
  1. AVAPRO [Concomitant]
  2. ALEVE (CAPLET) [Suspect]
     Indication: BACK PAIN
     Dosage: DAILY
     Route: 048
     Dates: start: 20110221
  3. CRESTOR [Concomitant]
  4. JANUVIA [Concomitant]
  5. OMEPRAZOLE [Concomitant]

REACTIONS (1)
  - ABDOMINAL DISCOMFORT [None]
